FAERS Safety Report 13708522 (Version 4)
Quarter: 2018Q1

REPORT INFORMATION
  Report Type: Spontaneous
  Country: US (occurrence: US)
  Receive Date: 20170630
  Receipt Date: 20180313
  Transmission Date: 20180508
  Serious: Yes (Other)
  Sender: FDA-Public Use
  Company Number: US-SUNOVION-2017SUN002738

PATIENT

DRUGS (2)
  1. LATUDA [Suspect]
     Active Substance: LURASIDONE HYDROCHLORIDE
     Dosage: UNK
     Route: 048
  2. GEODON [Concomitant]
     Active Substance: ZIPRASIDONE HYDROCHLORIDE\ZIPRASIDONE MESYLATE

REACTIONS (16)
  - Blood glucose increased [Unknown]
  - Agitation [Unknown]
  - Dizziness [Unknown]
  - Disturbance in attention [Unknown]
  - Sleep disorder [Unknown]
  - Vision blurred [Unknown]
  - Somnolence [Unknown]
  - Musculoskeletal stiffness [Unknown]
  - Decreased appetite [Unknown]
  - Weight increased [Unknown]
  - Reduced facial expression [Unknown]
  - Tremor [Unknown]
  - Restlessness [Unknown]
  - Glycosylated haemoglobin increased [Unknown]
  - Depressed mood [Recovered/Resolved]
  - Ageusia [Unknown]
